FAERS Safety Report 9342096 (Version 1)
Quarter: 2013Q2

REPORT INFORMATION
  Report Type: Spontaneous
  Country: FR (occurrence: FR)
  Receive Date: 20130611
  Receipt Date: 20130611
  Transmission Date: 20140414
  Serious: Yes (Hospitalization, Other)
  Sender: FDA-Public Use
  Company Number: FR-PFIZER INC-2013172060

PATIENT
  Age: 82 Year
  Sex: Male

DRUGS (15)
  1. LYRICA [Suspect]
     Indication: NEURALGIA
     Dosage: 150 MG TWO TABLETS IN THE MORNING AND TWO TABLETS IN THE EVENING
     Route: 048
     Dates: end: 20130226
  2. ATARAX [Concomitant]
  3. APIDRA [Concomitant]
  4. INSULATARD [Concomitant]
  5. LASILIX [Concomitant]
  6. IKOREL [Concomitant]
  7. VASTEN [Concomitant]
  8. INEXIUM [Concomitant]
  9. PRAXILENE [Concomitant]
  10. PLAVIX [Concomitant]
  11. DAFALGAN [Concomitant]
  12. ECONAZOLE [Concomitant]
  13. ALLOPURINOL [Concomitant]
  14. IMODIUM [Concomitant]
  15. IXPRIM [Concomitant]

REACTIONS (6)
  - Overdose [Recovered/Resolved]
  - Confusional state [Recovered/Resolved]
  - Disorientation [Recovered/Resolved]
  - Hallucination, visual [Recovered/Resolved]
  - Fall [Recovered/Resolved]
  - Pain in extremity [Recovered/Resolved]
